FAERS Safety Report 14441337 (Version 3)
Quarter: 2021Q4

REPORT INFORMATION
  Report Type: Spontaneous
  Country: US (occurrence: US)
  Receive Date: 20180125
  Receipt Date: 20211103
  Transmission Date: 20220303
  Serious: No
  Sender: FDA-Public Use
  Company Number: US-INCYTE CORPORATION-2018IN000436

PATIENT

DRUGS (5)
  1. JAKAFI [Suspect]
     Active Substance: RUXOLITINIB
     Indication: Myelofibrosis
     Dosage: 5 MG, BID
     Route: 048
     Dates: start: 20171128
  2. LOW DOSE ASPIRIN [Concomitant]
     Active Substance: ASPIRIN
     Indication: Product used for unknown indication
     Route: 065
  3. TYLENOL                            /00020001/ [Concomitant]
     Indication: Product used for unknown indication
     Route: 065
  4. HYDROCHLOROTHIAZIDE [Concomitant]
     Active Substance: HYDROCHLOROTHIAZIDE
     Indication: Product used for unknown indication
     Route: 065
  5. VITAMIN D                          /00107901/ [Concomitant]
     Indication: Product used for unknown indication
     Route: 065

REACTIONS (4)
  - Red blood cell count abnormal [Recovering/Resolving]
  - Increased appetite [Unknown]
  - Arthritis [Unknown]
  - Weight increased [Unknown]
